FAERS Safety Report 6701401-9 (Version None)
Quarter: 2010Q2

REPORT INFORMATION
  Report Type: 
  Country: None (occurrence: None)
  Receive Date: 20100429
  Receipt Date: 20100421
  Transmission Date: 20101027
  Serious: No
  Sender: FDA-Public Use
  Company Number: 2009BI037084

PATIENT
  Age: 61 Year
  Sex: Female

DRUGS (1)
  1. TYSABRI [Suspect]
     Indication: MULTIPLE SCLEROSIS
     Route: 042
     Dates: start: 20080827

REACTIONS (6)
  - CYSTITIS [None]
  - DIPLEGIA [None]
  - IMMUNOSUPPRESSION [None]
  - MULTIPLE SCLEROSIS [None]
  - PYREXIA [None]
  - SINUSITIS [None]
